FAERS Safety Report 24331368 (Version 1)
Quarter: 2024Q3

REPORT INFORMATION
  Report Type: Spontaneous
  Country: FR (occurrence: FR)
  Receive Date: 20240918
  Receipt Date: 20240918
  Transmission Date: 20241016
  Serious: Yes (Life-Threatening, Hospitalization, Other)
  Sender: AUROBINDO
  Company Number: FR-AFSSAPS-CN2024000839

PATIENT
  Age: 16 Year
  Sex: Male

DRUGS (4)
  1. ARIPIPRAZOLE [Suspect]
     Active Substance: ARIPIPRAZOLE
     Indication: Product used for unknown indication
     Dosage: 26 DOSAGE FORM(TAKING 26 TABLETS OF ARIPIPRAZOLE 10MG)
     Route: 048
     Dates: start: 20240811, end: 20240812
  2. CYAMEMAZINE [Suspect]
     Active Substance: CYAMEMAZINE
     Indication: Product used for unknown indication
     Dosage: 28 DOSAGE FORM(TAKING 28 TABLETS OF CYAMEMAZINE 25MG),1 TOTAL
     Route: 048
     Dates: start: 20240811, end: 20240812
  3. SERTRALINE HYDROCHLORIDE [Suspect]
     Active Substance: SERTRALINE HYDROCHLORIDE
     Indication: Product used for unknown indication
     Dosage: 21 DOSAGE FORM, TAKING 21 TABLETS OF 50MG SERTRALINE
     Route: 048
     Dates: start: 20240811
  4. MELATONIN [Concomitant]
     Active Substance: MELATONIN
     Indication: Product used for unknown indication
     Dosage: 10 DOSAGE FORM, TAKING 10 TABLETS OF MELATONIN 2MG
     Route: 048
     Dates: start: 20240811

REACTIONS (4)
  - Serotonin syndrome [Recovered/Resolved]
  - Electrocardiogram QT prolonged [Recovered/Resolved]
  - Poisoning deliberate [Recovered/Resolved]
  - Extrapyramidal disorder [Recovered/Resolved]

NARRATIVE: CASE EVENT DATE: 20240811
